FAERS Safety Report 21658913 (Version 1)
Quarter: 2022Q4

REPORT INFORMATION
  Report Type: Other
  Country: EG (occurrence: None)
  Receive Date: 20221129
  Receipt Date: 20221129
  Transmission Date: 20230113
  Serious: Yes (Other)
  Sender: FDA-Public Use
  Company Number: EG-ROCHE-3227658

PATIENT

DRUGS (2)
  1. RIBAVIRIN [Suspect]
     Active Substance: RIBAVIRIN
     Indication: Chronic hepatitis C
     Dosage: 1000 MG/DAY FOR THOSE {/=75 KG IN WEIGHT AND 1200 MG/DAY FOR THOSE }/=75 KG IN WEIGHT.
     Route: 065
  2. PEGINTERFERON ALFA-2A [Suspect]
     Active Substance: PEGINTERFERON ALFA-2A
     Indication: Chronic hepatitis C
     Dosage: AROUND THE UMBILICUS ONCE PER WEEK TOGETHER WITH RIBAVRIN
     Route: 058

REACTIONS (1)
  - Pericardial effusion [Unknown]
